FAERS Safety Report 16894246 (Version 1)
Quarter: 2019Q4

REPORT INFORMATION
  Report Type: Spontaneous
  Country: AU (occurrence: AU)
  Receive Date: 20191007
  Receipt Date: 20191007
  Transmission Date: 20200122
  Serious: No
  Sender: FDA-Public Use
  Company Number: None

PATIENT
  Sex: Female
  Weight: 52 kg

DRUGS (4)
  1. CYMBALTA 60MG DAILY [Concomitant]
  2. LAMIICTAL 200MG DAILY [Concomitant]
  3. SUBLOCADE [Suspect]
     Active Substance: BUPRENORPHINE
     Indication: DRUG DEPENDENCE
     Dosage: ?          QUANTITY:1 INJECTION(S);OTHER FREQUENCY:ONCE PER MONTH;?
     Route: 058
     Dates: start: 20190219
  4. SUBLOCADE [Suspect]
     Active Substance: BUPRENORPHINE
     Indication: PAIN
     Dosage: ?          QUANTITY:1 INJECTION(S);OTHER FREQUENCY:ONCE PER MONTH;?
     Route: 058
     Dates: start: 20190219

REACTIONS (1)
  - Abdominal mass [None]
